FAERS Safety Report 5536401-8 (Version None)
Quarter: 2007Q4

REPORT INFORMATION
  Report Type: 
  Country: None (occurrence: None)
  Receive Date: 20071120
  Receipt Date: 20070808
  Transmission Date: 20080405
  Serious: No
  Sender: FDA-Public Use
  Company Number: WAES 0708USA01492

PATIENT
  Age: 85 Year
  Sex: Male

DRUGS (3)
  1. JANUVIA [Suspect]
     Indication: TYPE 2 DIABETES MELLITUS
     Dosage: 100 MG/DAILY/PO
     Route: 048
     Dates: start: 20070401
  2. THERAPY UNSPECIFIED [Concomitant]
  3. INSULIN [Concomitant]

REACTIONS (2)
  - COUGH [None]
  - NASAL CONGESTION [None]
